FAERS Safety Report 8273826-4 (Version None)
Quarter: 2012Q2

REPORT INFORMATION
  Report Type: 
  Country: None (occurrence: None)
  Receive Date: 20120411
  Receipt Date: 20120403
  Transmission Date: 20120825
  Serious: Yes (Hospitalization, Other)
  Sender: FDA-Public Use
  Company Number: PHHY2011US63361

PATIENT
  Sex: Female

DRUGS (6)
  1. PLAVIX [Concomitant]
  2. CALCIUM CARBONATE [Concomitant]
  3. ZETIA [Suspect]
  4. VITAMINS NOS [Concomitant]
  5. EXFORGE [Suspect]
     Dosage: 160 MG OF VALS AND 05 MG OF AMLO, ONCE DAILY
  6. LYRICA [Suspect]

REACTIONS (11)
  - AMNESIA [None]
  - ANKLE FRACTURE [None]
  - PAIN IN EXTREMITY [None]
  - GAIT DISTURBANCE [None]
  - INCREASED APPETITE [None]
  - PNEUMONIA [None]
  - BURNING SENSATION [None]
  - FALL [None]
  - WEIGHT DECREASED [None]
  - BACK PAIN [None]
  - CEREBROVASCULAR ACCIDENT [None]
